FAERS Safety Report 8211340-2 (Version None)
Quarter: 2012Q1

REPORT INFORMATION
  Report Type: 
  Country: None (occurrence: None)
  Receive Date: 20120315
  Receipt Date: 20120315
  Transmission Date: 20120608
  Serious: Yes (Life-Threatening, Hospitalization, Other)
  Sender: FDA-Public Use
  Company Number: None

PATIENT
  Age: 27 Year
  Sex: Female
  Weight: 65.77 kg

DRUGS (1)
  1. TRI-SPRINTEC TAB [Suspect]
     Indication: CONTRACEPTION
     Dosage: ONE TABLET
     Route: 048
     Dates: start: 20111001, end: 20120308

REACTIONS (1)
  - PULMONARY EMBOLISM [None]
